FAERS Safety Report 10040590 (Version 1)
Quarter: 2014Q1

REPORT INFORMATION
  Report Type: Report from Study
  Country: PT (occurrence: PT)
  Receive Date: 20140327
  Receipt Date: 20140327
  Transmission Date: 20141002
  Serious: Yes (Death)
  Sender: FDA-Public Use
  Company Number: PT-AMGEN-PRTCT2014021342

PATIENT
  Sex: Male

DRUGS (1)
  1. ETANERCEPT [Suspect]
     Indication: JUVENILE IDIOPATHIC ARTHRITIS
     Dosage: UNK
     Route: 065

REACTIONS (1)
  - Death [Fatal]
